FAERS Safety Report 16752300 (Version 2)
Quarter: 2019Q3

REPORT INFORMATION
  Report Type: Report from Study
  Country: None (occurrence: GB)
  Receive Date: 20190828
  Receipt Date: 20190909
  Transmission Date: 20191005
  Serious: Yes (Hospitalization)
  Sender: FDA-Public Use
  Company Number: GB-ABBVIE-19P-167-2899686-00

PATIENT
  Age: 61 Year
  Sex: Male

DRUGS (3)
  1. IBRUTINIB [Suspect]
     Active Substance: IBRUTINIB
     Indication: CHRONIC LYMPHOCYTIC LEUKAEMIA
     Route: 048
     Dates: start: 20190605
  2. VENETOCLAX. [Suspect]
     Active Substance: VENETOCLAX
     Indication: CHRONIC LYMPHOCYTIC LEUKAEMIA
     Route: 048
     Dates: start: 20190731, end: 20190821
  3. ALLOPURINOL. [Concomitant]
     Active Substance: ALLOPURINOL
     Indication: PRODUCT USED FOR UNKNOWN INDICATION

REACTIONS (3)
  - Acute kidney injury [Recovered/Resolved]
  - Hyperphosphataemia [Recovered/Resolved]
  - Blood creatinine increased [Recovered/Resolved]

NARRATIVE: CASE EVENT DATE: 20190821
